FAERS Safety Report 22072804 (Version 2)
Quarter: 2023Q1

REPORT INFORMATION
  Report Type: Spontaneous
  Country: CN (occurrence: CN)
  Receive Date: 20230308
  Receipt Date: 20230316
  Transmission Date: 20230417
  Serious: Yes (Other)
  Sender: FDA-Public Use
  Company Number: CN-MACLEODS PHARMACEUTICALS US LTD-MAC2023040060

PATIENT

DRUGS (2)
  1. TRIAMCINOLONE ACETONIDE [Suspect]
     Active Substance: TRIAMCINOLONE ACETONIDE
     Indication: Vitrectomy
     Dosage: 0.1 MILLILITER, SINGLE (0.1 ML TA (40 MG/ML) WAS INJECTED INTO VITREOUS CAVITY)
     Dates: start: 202001
  2. LIDOCAINE [Concomitant]
     Active Substance: LIDOCAINE
     Indication: Anaesthesia
     Dosage: UNK (3-PORT 23-GAUGE PPV)
     Route: 056
     Dates: start: 202001

REACTIONS (2)
  - Type I hypersensitivity [Recovered/Resolved]
  - Retinal oedema [Recovered/Resolved]

NARRATIVE: CASE EVENT DATE: 20200101
